FAERS Safety Report 6004344-1 (Version None)
Quarter: 2008Q4

REPORT INFORMATION
  Report Type: 
  Country: None (occurrence: None)
  Receive Date: 20081216
  Receipt Date: 20081210
  Transmission Date: 20090506
  Serious: Yes (Hospitalization, Other)
  Sender: FDA-Public Use
  Company Number: US-BAYER-200840041NA

PATIENT
  Sex: Female

DRUGS (10)
  1. AVELOX [Suspect]
     Indication: URINARY TRACT INFECTION
     Dates: start: 20081129, end: 20081201
  2. IVP DYE [Suspect]
     Indication: COMPUTERISED TOMOGRAM
  3. SYNTHROID [Concomitant]
  4. NEXIUM [Concomitant]
  5. ESVORGE [Concomitant]
  6. SIMVASTATIN [Concomitant]
  7. CALCIUM WITH VITAMIN D [Concomitant]
  8. LORAZEPAM [Concomitant]
  9. DARVOCET [Concomitant]
  10. CELEBREX [Concomitant]

REACTIONS (9)
  - ATELECTASIS [None]
  - BRONCHITIS [None]
  - CARDIAC FAILURE CONGESTIVE [None]
  - CHRONIC OBSTRUCTIVE PULMONARY DISEASE [None]
  - DYSPNOEA [None]
  - EYE SWELLING [None]
  - EYELID PTOSIS [None]
  - HYPERSENSITIVITY [None]
  - SWOLLEN TONGUE [None]
